FAERS Safety Report 17054913 (Version 1)
Quarter: 2019Q4

REPORT INFORMATION
  Report Type: Spontaneous
  Country: US (occurrence: US)
  Receive Date: 20191120
  Receipt Date: 20191120
  Transmission Date: 20200122
  Serious: Yes (Other)
  Sender: FDA-Public Use
  Company Number: US-SA-2019SA320237

PATIENT
  Age: 25 Year
  Sex: Male
  Weight: 86 kg

DRUGS (2)
  1. HECTOROL [Suspect]
     Active Substance: DOXERCALCIFEROL
     Dosage: 2 UG, PRN
     Route: 041
     Dates: start: 20190710
  2. MIRCERA [Suspect]
     Active Substance: METHOXY POLYETHYLENE GLYCOL-EPOETIN BETA
     Indication: NEPHROGENIC ANAEMIA
     Dosage: 150 UG
     Route: 065
     Dates: start: 20190717, end: 20190911

REACTIONS (5)
  - Dyspnoea [Recovered/Resolved]
  - Nausea [Recovered/Resolved]
  - Drug hypersensitivity [Recovered/Resolved]
  - Flushing [Recovered/Resolved]
  - Dizziness [Recovered/Resolved]

NARRATIVE: CASE EVENT DATE: 20190911
